FAERS Safety Report 7979671-9 (Version None)
Quarter: 2011Q4

REPORT INFORMATION
  Report Type: 
  Country: None (occurrence: None)
  Receive Date: 20111214
  Receipt Date: 20111129
  Transmission Date: 20120403
  Serious: Yes (Hospitalization)
  Sender: FDA-Public Use
  Company Number: US-ARROW GEN-2011-21044

PATIENT
  Age: 68 Year
  Sex: Male

DRUGS (2)
  1. METHYLENE BLUE [Suspect]
     Indication: VASOPLEGIA SYNDROME
     Route: 042
  2. SERTRALINE HYDROCHLORIDE [Suspect]
     Indication: PRODUCT USED FOR UNKNOWN INDICATION
     Route: 065

REACTIONS (2)
  - POTENTIATING DRUG INTERACTION [None]
  - SEROTONIN SYNDROME [None]
